FAERS Safety Report 19711234 (Version 3)
Quarter: 2021Q3

REPORT INFORMATION
  Report Type: Spontaneous
  Country: DE (occurrence: DE)
  Receive Date: 20210817
  Receipt Date: 20210903
  Transmission Date: 20211014
  Serious: Yes (Hospitalization, Other)
  Sender: FDA-Public Use
  Company Number: DE-MYLANLABS-2021M1051947

PATIENT
  Age: 25 Year
  Sex: Female

DRUGS (6)
  1. ACETYLSALICYLSAEURE [Interacting]
     Active Substance: ASPIRIN
     Indication: PRODUCT USED FOR UNKNOWN INDICATION
     Dosage: UNK
  2. TAVOR (LORAZEPAM) [Concomitant]
     Active Substance: LORAZEPAM
     Dosage: PRN (BEDARF)
  3. ZOPICLON [Concomitant]
     Active Substance: ZOPICLONE
     Dosage: PRN (BEDARF)
  4. CITALOPRAM [Suspect]
     Active Substance: CITALOPRAM HYDROBROMIDE
     Indication: PRODUCT USED FOR UNKNOWN INDICATION
     Dosage: 30 MILLIGRAM, QD (30 MG, 1?0?0?0)
  5. ACETYLSALICYLSAEURE [Interacting]
     Active Substance: ASPIRIN
     Dosage: UNK (REGELM?SIGE EINNAHME WEGEN SCHMERZEN IM RAHMEN EINER PNEUMONIE)
     Dates: start: 202101
  6. LEVOTHYROXINE SODIUM. [Concomitant]
     Active Substance: LEVOTHYROXINE SODIUM
     Dosage: 150 MICROGRAM, QD (150 ?G, 1?0?0?0)

REACTIONS (6)
  - Haematochezia [Unknown]
  - Labelled drug-drug interaction medication error [Unknown]
  - Melaena [Unknown]
  - Gastric ulcer [Unknown]
  - Gastric haemorrhage [Unknown]
  - Product monitoring error [Unknown]

NARRATIVE: CASE EVENT DATE: 20210101
